FAERS Safety Report 5217460-9 (Version None)
Quarter: 2006Q4

REPORT INFORMATION
  Report Type: 
  Country: None (occurrence: None)
  Receive Date: 20061130
  Receipt Date: 20060413
  Transmission Date: 20070319
  Serious: Yes (Hospitalization)
  Sender: FDA-Public Use
  Company Number: US_0509121868

PATIENT
  Age: 37 Year
  Sex: Female
  Weight: 113.4 kg

DRUGS (5)
  1. ZYPREXA [Suspect]
     Dosage: 2.5 MG DAILY (1/D)
     Dates: start: 20020328, end: 20030304
  2. EFFEXOR [Concomitant]
  3. WELLBUTRIN [Concomitant]
  4. KLONOPIN [Concomitant]
  5. PROGESTERONE [Concomitant]

REACTIONS (2)
  - DIABETES MELLITUS [None]
  - PANCREATITIS [None]
